FAERS Safety Report 8241090-8 (Version None)
Quarter: 2012Q1

REPORT INFORMATION
  Report Type: 
  Country: None (occurrence: None)
  Receive Date: 20120328
  Receipt Date: 20120321
  Transmission Date: 20120608
  Serious: Yes (Congenital Anomaly)
  Sender: FDA-Public Use
  Company Number: US-VIIV HEALTHCARE LIMITED-A0966085A

PATIENT
  Sex: Female
  Weight: 2.3 kg

DRUGS (4)
  1. COMBIVIR [Suspect]
     Indication: HIV INFECTION
     Dosage: 2TAB PER DAY
     Route: 064
  2. NORVIR [Suspect]
     Indication: HIV INFECTION
     Dosage: 100MGD PER DAY
     Route: 064
  3. REYATAZ [Suspect]
     Indication: HIV INFECTION
     Dosage: 300MGD PER DAY
     Route: 064
  4. VIREAD [Suspect]
     Indication: HIV INFECTION
     Dosage: 300MGD PER DAY
     Route: 064

REACTIONS (2)
  - UMBILICAL CORD ABNORMALITY [None]
  - ANKYLOGLOSSIA CONGENITAL [None]
